FAERS Safety Report 6114229-8 (Version None)
Quarter: 2009Q1

REPORT INFORMATION
  Report Type: 
  Country: None (occurrence: None)
  Receive Date: 20090312
  Receipt Date: 20081119
  Transmission Date: 20090719
  Serious: Yes (Death, Hospitalization, Other)
  Sender: FDA-Public Use
  Company Number: US-ABBOTT-08P-163-0484587-00

PATIENT
  Sex: Female
  Weight: 49.123 kg

DRUGS (36)
  1. DEPAKOTE [Suspect]
     Indication: CONVULSION
     Dosage: 250MG; 2 IN AM,2 AT NIGHT,1 IN AFTERNOON
     Route: 048
  2. DEPAKOTE [Suspect]
     Route: 048
     Dates: start: 20071115
  3. DEPAKOTE [Suspect]
     Route: 048
     Dates: start: 20060301, end: 20071114
  4. BOTULINUM TOXIN TYPE A [Concomitant]
     Indication: MOVEMENT DISORDER
     Dates: start: 20060701
  5. BACLOFEN [Concomitant]
     Indication: MUSCLE SPASMS
     Dosage: PUMP
  6. BACLOFEN [Concomitant]
     Indication: MUSCLE SPASTICITY
     Dosage: 10 MG; 1/2-1 DAILY
  7. AMANTADINE HCL [Concomitant]
     Indication: ASTHENIA
     Dates: start: 20071119
  8. LEVOTHYROXINE SODIUM [Concomitant]
     Indication: DRUG USE FOR UNKNOWN INDICATION
     Dosage: 0.5 MG DAILY
  9. TOLTERODINE TARTRATE [Concomitant]
     Indication: DRUG USE FOR UNKNOWN INDICATION
     Dosage: 4 MG DAILY
  10. ALENDRONATE SODIUM [Concomitant]
     Indication: DRUG USE FOR UNKNOWN INDICATION
  11. CELECOXIB [Concomitant]
     Indication: PAIN
     Dosage: 1 TABLET AT NIGHT
  12. AUGMENTIN [Concomitant]
     Indication: DRUG USE FOR UNKNOWN INDICATION
  13. BACTRIM [Concomitant]
     Indication: DRUG USE FOR UNKNOWN INDICATION
  14. ELETRIPTAN HYDROBROMIDE [Concomitant]
     Indication: MIGRAINE
     Route: 048
     Dates: start: 20080601
  15. CALCIUM [Concomitant]
     Indication: DRUG USE FOR UNKNOWN INDICATION
     Dosage: DAILY
  16. VITAMIN D [Concomitant]
     Indication: DRUG USE FOR UNKNOWN INDICATION
     Dosage: DAILY
  17. VENLAFAXINE HYDROCHLORIDE [Concomitant]
     Indication: DRUG USE FOR UNKNOWN INDICATION
  18. AMITRIPTYLINE [Concomitant]
     Indication: INSOMNIA
     Dosage: 100 MG AT NIGHT
  19. AMITRIPTYLINE [Concomitant]
     Indication: MIGRAINE
  20. AMITRIPTYLINE [Concomitant]
     Indication: FATIGUE
  21. AMITRIPTYLINE [Concomitant]
     Indication: PAIN
  22. MULTI-VITAMIN [Concomitant]
     Indication: DRUG USE FOR UNKNOWN INDICATION
     Dosage: DAILY
  23. THOMAPYRIN N [Concomitant]
     Indication: MIGRAINE
  24. PARACETAMOL [Concomitant]
     Indication: DRUG USE FOR UNKNOWN INDICATION
  25. ASPIRIN [Concomitant]
     Indication: DRUG USE FOR UNKNOWN INDICATION
  26. PREGABALIN [Concomitant]
     Indication: CONVULSION PROPHYLAXIS
  27. TYLENOL (CAPLET) [Concomitant]
     Indication: DRUG USE FOR UNKNOWN INDICATION
  28. UNKNOWN MEDICATION [Concomitant]
     Indication: DRUG USE FOR UNKNOWN INDICATION
     Dosage: 1 MG DAILY
  29. RETINOL [Concomitant]
     Indication: DRUG USE FOR UNKNOWN INDICATION
     Dosage: DAILY
  30. VITAMIN B COMPLEX CAP [Concomitant]
     Indication: DRUG USE FOR UNKNOWN INDICATION
     Dosage: DAILY
  31. ASCORBIC ACID [Concomitant]
     Indication: DRUG USE FOR UNKNOWN INDICATION
     Dosage: DAILY
  32. BACTRIM [Concomitant]
     Dosage: DAILY
  33. LIDIA PINKHAM [Concomitant]
     Indication: DRUG USE FOR UNKNOWN INDICATION
     Dosage: 2 TABS DAILY
  34. DOCUSATE SODIUM [Concomitant]
     Indication: DRUG USE FOR UNKNOWN INDICATION
     Dosage: AT BEDTIME
  35. FOLIC ACID [Concomitant]
     Indication: DRUG USE FOR UNKNOWN INDICATION
     Dosage: 1 MG DAILY
  36. OVER-THE-COUNTER MENOPAUSE PILL [Concomitant]
     Indication: DRUG USE FOR UNKNOWN INDICATION
     Dosage: 2 PILLS DAILY

REACTIONS (5)
  - CONVULSION [None]
  - DEATH [None]
  - DRUG INEFFECTIVE [None]
  - FATIGUE [None]
  - WEIGHT DECREASED [None]
